FAERS Safety Report 9598633 (Version 1)
Quarter: 2013Q4

REPORT INFORMATION
  Report Type: Spontaneous
  Country: US (occurrence: US)
  Receive Date: 20131004
  Receipt Date: 20131004
  Transmission Date: 20140711
  Serious: No
  Sender: FDA-Public Use
  Company Number: US-AMGEN-USASP2013024503

PATIENT
  Age: 59 Year
  Sex: Female

DRUGS (3)
  1. ENBREL [Suspect]
     Indication: PSORIATIC ARTHROPATHY
     Dosage: 50 MG, 2 TIMES/WK
     Dates: start: 20100101
  2. ENBREL [Suspect]
     Indication: PSORIASIS
  3. CELEBREX [Concomitant]
     Dosage: UNK UNK, BID

REACTIONS (6)
  - Arthralgia [Recovering/Resolving]
  - Psoriatic arthropathy [Recovered/Resolved]
  - Hypoaesthesia [Not Recovered/Not Resolved]
  - Carpal tunnel syndrome [Not Recovered/Not Resolved]
  - Psoriasis [Recovering/Resolving]
  - Paraesthesia [Not Recovered/Not Resolved]
